FAERS Safety Report 10841440 (Version 1)
Quarter: 2015Q1

REPORT INFORMATION
  Report Type: Spontaneous
  Country: US (occurrence: US)
  Receive Date: 20150220
  Receipt Date: 20150220
  Transmission Date: 20150721
  Serious: Yes (Hospitalization)
  Sender: FDA-Public Use
  Company Number: US-ROCHE-1540062

PATIENT
  Sex: Male

DRUGS (3)
  1. GINSENG [Concomitant]
  2. TEA [Concomitant]
     Active Substance: TEA LEAF
  3. NUTROPIN AQ [Suspect]
     Active Substance: SOMATROPIN
     Indication: DWARFISM
     Route: 058
     Dates: start: 20141231

REACTIONS (1)
  - Anaphylactic reaction [Unknown]
